FAERS Safety Report 7588150-2 (Version None)
Quarter: 2011Q3

REPORT INFORMATION
  Report Type: 
  Country: None (occurrence: None)
  Receive Date: 20110705
  Receipt Date: 20110412
  Transmission Date: 20111222
  Serious: Yes (Hospitalization)
  Sender: FDA-Public Use
  Company Number: US-BAYER-201041562NA

PATIENT
  Sex: Female
  Weight: 58.05 kg

DRUGS (10)
  1. MALARONE [Concomitant]
  2. YASMIN [Suspect]
     Indication: ACNE
     Dosage: UNK
     Dates: start: 20080301, end: 20100101
  3. YASMIN [Suspect]
     Indication: PREMENSTRUAL SYNDROME
  4. YAZ [Suspect]
     Dosage: UNK
     Dates: start: 20080301, end: 20100101
  5. DROSPIRENONE AND ETHINYL ESTRADIOL [Suspect]
  6. DIFLUCAN [Concomitant]
  7. MAGNESIUM [MAGNESIUM] [Concomitant]
  8. MULTI-VITAMIN [Concomitant]
  9. ZOLOFT [Concomitant]
  10. DOXYCYCLINE [Concomitant]

REACTIONS (1)
  - GALLBLADDER INJURY [None]
